FAERS Safety Report 18821935 (Version 5)
Quarter: 2021Q3

REPORT INFORMATION
  Report Type: Spontaneous
  Country: JP (occurrence: JP)
  Receive Date: 20210202
  Receipt Date: 20210827
  Transmission Date: 20211014
  Serious: Yes (Death, Life-Threatening, Hospitalization, Other)
  Sender: FDA-Public Use
  Company Number: JP-009507513-2101JPN000545J

PATIENT
  Age: 81 Year
  Sex: Male
  Weight: 63 kg

DRUGS (3)
  1. MAGMITT [Concomitant]
     Active Substance: MAGNESIUM OXIDE
     Dosage: UNK
     Route: 048
     Dates: start: 20201202
  2. KEYTRUDA [Suspect]
     Active Substance: PEMBROLIZUMAB
     Indication: LUNG ADENOCARCINOMA STAGE III
     Dosage: 200 MILLIGRAM, Q3W
     Route: 041
     Dates: start: 20201202, end: 20201212
  3. ADOAIR [Concomitant]
     Active Substance: FLUTICASONE PROPIONATE\SALMETEROL XINAFOATE
     Indication: ASTHMA
     Dosage: 2 INHALATIONS/DOSE, BID
     Route: 065
     Dates: start: 20140626, end: 20210125

REACTIONS (12)
  - Respiratory failure [Not Recovered/Not Resolved]
  - Immune-mediated hepatic disorder [Recovering/Resolving]
  - Diplopia [Unknown]
  - Optic nerve disorder [Unknown]
  - Respiratory paralysis [Not Recovered/Not Resolved]
  - Malignant neoplasm progression [Fatal]
  - Eyelid ptosis [Unknown]
  - Atrial fibrillation [Unknown]
  - Immune-mediated myositis [Not Recovered/Not Resolved]
  - Rhabdomyolysis [Recovering/Resolving]
  - Amylase increased [Recovered/Resolved]
  - Ileus [Unknown]

NARRATIVE: CASE EVENT DATE: 20201221
